FAERS Safety Report 15740366 (Version 1)
Quarter: 2018Q4

REPORT INFORMATION
  Report Type: Spontaneous
  Country: PL (occurrence: PL)
  Receive Date: 20181219
  Receipt Date: 20181219
  Transmission Date: 20190205
  Serious: Yes (Other)
  Sender: FDA-Public Use
  Company Number: PL-SAMSUNG BIOEPIS-SB-2018-16648

PATIENT
  Sex: Female

DRUGS (1)
  1. FLIXABI [Suspect]
     Active Substance: INFLIXIMAB
     Indication: PRODUCT USED FOR UNKNOWN INDICATION
     Dosage: UNKNOWN
     Route: 065

REACTIONS (5)
  - Abdominal pain [Unknown]
  - Contusion [Unknown]
  - Shock [Unknown]
  - Dyspnoea [Unknown]
  - Communication disorder [Unknown]

NARRATIVE: CASE EVENT DATE: 20181205
